FAERS Safety Report 22127104 (Version 1)
Quarter: 2023Q1

REPORT INFORMATION
  Report Type: Spontaneous
  Country: MX (occurrence: MX)
  Receive Date: 20230322
  Receipt Date: 20230322
  Transmission Date: 20230418
  Serious: Yes (Life-Threatening, Hospitalization, Other)
  Sender: FDA-Public Use
  Company Number: MX-AMGEN-MEXSP2023045360

PATIENT
  Age: 13 Year
  Sex: Female

DRUGS (1)
  1. PROLIA [Suspect]
     Active Substance: DENOSUMAB
     Indication: Product used for unknown indication
     Dosage: UNK, Q6MO
     Route: 065
     Dates: start: 202201

REACTIONS (8)
  - Status epilepticus [Unknown]
  - Aura [Unknown]
  - Seizure [Not Recovered/Not Resolved]
  - Arthrofibrosis [Unknown]
  - Ligament injury [Unknown]
  - Ventricular extrasystoles [Unknown]
  - Muscle contractions involuntary [Unknown]
  - Off label use [Unknown]

NARRATIVE: CASE EVENT DATE: 20220101
